FAERS Safety Report 16426276 (Version 6)
Quarter: 2020Q3

REPORT INFORMATION
  Report Type: Report from Study
  Country: FR (occurrence: FR)
  Receive Date: 20190613
  Receipt Date: 20190914
  Transmission Date: 20201105
  Serious: Yes (Life-Threatening, Hospitalization)
  Sender: FDA-Public Use
  Company Number: FR-ROCHE-2336049

PATIENT
  Age: 71 Year
  Sex: Male
  Weight: 89.5 kg

DRUGS (28)
  1. DOLIPRANE [Concomitant]
     Active Substance: ACETAMINOPHEN
     Indication: PAIN
     Route: 048
     Dates: start: 20190525
  2. CANDESARTAN. [Concomitant]
     Active Substance: CANDESARTAN
     Indication: HYPERTENSION
     Route: 048
     Dates: start: 20190520
  3. VALACICLOVIR [Concomitant]
     Active Substance: VALACYCLOVIR HYDROCHLORIDE
     Route: 048
     Dates: start: 20190529
  4. OPHTIM [Concomitant]
     Active Substance: TIMOLOL MALEATE
     Indication: OCULAR HYPERTENSION
     Route: 047
     Dates: start: 20190528, end: 20190607
  5. FOLIC ACID. [Concomitant]
     Active Substance: FOLIC ACID
     Route: 048
     Dates: start: 20190601
  6. DUPHALAC [Concomitant]
     Active Substance: LACTULOSE
     Route: 048
  7. MONOTILDIEM [Concomitant]
     Active Substance: DILTIAZEM
     Indication: HYPERTENSION
     Route: 048
     Dates: start: 20190520
  8. ESIDREX [Concomitant]
     Active Substance: HYDROCHLOROTHIAZIDE
     Indication: HYPERTENSION
     Route: 048
     Dates: start: 20190520
  9. ALPRAZOLAM. [Concomitant]
     Active Substance: ALPRAZOLAM
     Route: 048
  10. GRANISETRON [Concomitant]
     Active Substance: GRANISETRON
     Route: 042
     Dates: start: 20190528, end: 20190529
  11. LOVENOX [Concomitant]
     Active Substance: ENOXAPARIN SODIUM
     Route: 042
     Dates: start: 20190527
  12. RITUXIMAB. [Suspect]
     Active Substance: RITUXIMAB
     Indication: DIFFUSE LARGE B-CELL LYMPHOMA
     Dosage: AT 375 MILLIGRAMS PER SQUARE METER (MG/M^2) IV, ?DATE OF MOST RECENT DOSE OF RITUXIMAB (750 MG) PRIO
     Route: 041
     Dates: start: 20190528
  13. GLICLAZIDE [Concomitant]
     Active Substance: GLICLAZIDE
     Route: 048
     Dates: start: 20190520
  14. IMOVANE [Concomitant]
     Active Substance: ZOPICLONE
     Indication: INSOMNIA
     Route: 048
  15. CYCLOPHOSPHAMIDE. [Suspect]
     Active Substance: CYCLOPHOSPHAMIDE
     Indication: DIFFUSE LARGE B-CELL LYMPHOMA
     Dosage: AT 750 MG/M^2 IV, ?DATE OF MOST RECENT DOSE OF CYCLOPHOSPHAMIDE (1500 MG) PRIOR TO SAE ONSET 29/MAY/
     Route: 042
     Dates: start: 20190529
  16. PREDNISONE. [Suspect]
     Active Substance: PREDNISONE
     Indication: DIFFUSE LARGE B-CELL LYMPHOMA
     Dosage: AT 100 MILLIGRAMS PER DAY (MG/DAY) ORALLY (PO) ON DAYS 1?5 OF EVERY 21?DAY CYCLE FOR 6 CYCLES. ?DATE
     Route: 048
     Dates: start: 20190528
  17. PRIMPERAN [Concomitant]
     Active Substance: METOCLOPRAMIDE HYDROCHLORIDE
     Route: 048
  18. PLACEBO [Suspect]
     Active Substance: UNSPECIFIED INGREDIENT
     Indication: DIFFUSE LARGE B-CELL LYMPHOMA
     Dosage: DATE OF MOST RECENT DOSE PRIOR TO SAE ONSET  WAS ON 29/MAY/2019.
     Route: 042
     Dates: start: 20190529
  19. MONOTILDIEM [Concomitant]
     Active Substance: DILTIAZEM
     Route: 048
     Dates: start: 20190521
  20. ZARZIO [Concomitant]
     Active Substance: FILGRASTIM
     Route: 042
     Dates: start: 20190604, end: 20190606
  21. FUROSEMIDE. [Concomitant]
     Active Substance: FUROSEMIDE
     Route: 048
     Dates: start: 20190529, end: 20190601
  22. FASTURTEC [Concomitant]
     Active Substance: RASBURICASE
     Route: 042
     Dates: start: 20190528, end: 20190529
  23. METOCLOPRAMIDE. [Concomitant]
     Active Substance: METOCLOPRAMIDE
     Route: 042
     Dates: start: 20190529, end: 20190601
  24. MONOPROST [Concomitant]
     Active Substance: LATANOPROST
     Indication: OCULAR HYPERTENSION
     Route: 047
     Dates: start: 20190528, end: 20190607
  25. BACTRIM [Concomitant]
     Active Substance: SULFAMETHOXAZOLE\TRIMETHOPRIM
     Route: 048
     Dates: start: 20190601
  26. DOLIPRANE [Concomitant]
     Active Substance: ACETAMINOPHEN
     Route: 048
     Dates: start: 20190528, end: 20190528
  27. POLATUZUMAB VEDOTIN. [Suspect]
     Active Substance: POLATUZUMAB VEDOTIN
     Indication: DIFFUSE LARGE B-CELL LYMPHOMA
     Dosage: DATE OF MOST RECENT DOSE (162) OF POLATUZUMAB VEDOTIN PRIOR TO SAE ONSET 29/MAY/2019
     Route: 042
     Dates: start: 20190529
  28. DOXORUBICIN [Suspect]
     Active Substance: DOXORUBICIN
     Indication: DIFFUSE LARGE B-CELL LYMPHOMA
     Dosage: AT 50 MG/M^2 IV ON DAY 1 ?DATE OF MOST RECENT DOSE OF DOXORUBICIN (100 MG) PRIOR TO SAE ONSET ON 29/
     Route: 042
     Dates: start: 20190529

REACTIONS (1)
  - Necrotising colitis [Recovered/Resolved]

NARRATIVE: CASE EVENT DATE: 20190607
